FAERS Safety Report 8293928-6 (Version None)
Quarter: 2012Q2

REPORT INFORMATION
  Report Type: 
  Country: None (occurrence: None)
  Receive Date: 20120418
  Receipt Date: 20120416
  Transmission Date: 20120825
  Serious: No
  Sender: FDA-Public Use
  Company Number: US-PFIZER INC-2012094280

PATIENT
  Sex: Female
  Weight: 68.027 kg

DRUGS (5)
  1. GEODON [Suspect]
     Indication: BIPOLAR DISORDER
     Dosage: 80 MG, 2X/DAY
  2. VYVANSE [Suspect]
     Indication: SLEEP DISORDER
     Dosage: 60 MG, DAILY
  3. KLONOPIN [Suspect]
     Indication: ATTENTION DEFICIT/HYPERACTIVITY DISORDER
     Dosage: 0.1 MG, DAILY
  4. TRAZODONE HCL [Suspect]
     Indication: SLEEP DISORDER
     Dosage: 300 MG, DAILY
  5. DEPAKOTE [Suspect]
     Indication: AFFECTIVE DISORDER
     Dosage: 500 MG, 2X/DAY

REACTIONS (2)
  - RASH [None]
  - ERYTHEMA [None]
